FAERS Safety Report 25168193 (Version 1)
Quarter: 2025Q2

REPORT INFORMATION
  Report Type: Spontaneous
  Country: CN (occurrence: CN)
  Receive Date: 20250407
  Receipt Date: 20250407
  Transmission Date: 20250717
  Serious: Yes (Life-Threatening, Other)
  Sender: B BRAUN
  Company Number: CN-B.Braun Medical Inc.-2174415

PATIENT
  Age: 84 Year
  Sex: Male
  Weight: 70.0 kg

DRUGS (13)
  1. NUTRILIPID I.V. FAT EMULSION [Suspect]
     Active Substance: SOYBEAN OIL
     Indication: Nutritional supplementation
     Dates: start: 20250311, end: 20250311
  2. Live Combined Bifidobacterium, Lactobacillus and Enterococcus Capsules [Concomitant]
  3. Calcitriol Soft Capsules [Concomitant]
  4. Montmorillonite powder [Concomitant]
  5. CARBOCYSTEINE [Concomitant]
     Active Substance: CARBOCYSTEINE
  6. Calcium Carbonate D3 Granules (II) [Concomitant]
  7. AMBROXOL HYDROCHLORIDE [Concomitant]
     Active Substance: AMBROXOL HYDROCHLORIDE
  8. ONDANSETRON HYDROCHLORIDE [Concomitant]
     Active Substance: ONDANSETRON HYDROCHLORIDE
  9. Itopride Hydrochloride Dispersible Tablets [Concomitant]
  10. PANTOPRAZOLE SODIUM I.V. [Concomitant]
     Active Substance: PANTOPRAZOLE SODIUM
  11. PIPERACILLIN SODIUM\TAZOBACTAM SODIUM [Concomitant]
     Active Substance: PIPERACILLIN SODIUM\TAZOBACTAM SODIUM
  12. Compound Digestive Enzyme Capsules [Concomitant]
  13. Compound Vitamin B Tablets [Concomitant]

REACTIONS (4)
  - Atrial fibrillation [Recovering/Resolving]
  - Pyrexia [Recovering/Resolving]
  - Hypotension [Recovering/Resolving]
  - Chills [Recovering/Resolving]
